FAERS Safety Report 22178705 (Version 1)
Quarter: 2023Q2

REPORT INFORMATION
  Report Type: Spontaneous
  Country: SA (occurrence: SA)
  Receive Date: 20230405
  Receipt Date: 20230405
  Transmission Date: 20230722
  Serious: Yes (Death, Other)
  Sender: FDA-Public Use
  Company Number: SA-SUN PHARMACEUTICAL INDUSTRIES LTD-2023RR-384117

PATIENT
  Age: 54 Year
  Sex: Female

DRUGS (4)
  1. GEMCITABINE [Suspect]
     Active Substance: GEMCITABINE
     Indication: Leiomyosarcoma
     Dosage: 900 MILLIGRAM/SQ. METER, DAILY, ON DAYS 1 AND 8
     Route: 065
  2. DOCETAXEL [Suspect]
     Active Substance: DOCETAXEL
     Indication: Leiomyosarcoma
     Dosage: 75 MILLIGRAM/SQ. METER, DAILY, ON DAY 8 ONLY
     Route: 065
  3. DOXORUBICIN [Suspect]
     Active Substance: DOXORUBICIN
     Indication: Leiomyosarcoma
     Dosage: 60 MILLIGRAM/SQ. METER, EVERY THREE WEEKS
     Route: 065
  4. DACARBAZINE [Suspect]
     Active Substance: DACARBAZINE
     Indication: Leiomyosarcoma
     Dosage: 850 MILLIGRAM/SQ. METER, EVERY THREE WEEKS FOR 2 CYCLES
     Route: 065

REACTIONS (4)
  - Disease progression [Fatal]
  - Therapeutic product effect incomplete [Unknown]
  - Neuropathy peripheral [Unknown]
  - Neutropenia [Unknown]
